FAERS Safety Report 6282281-5 (Version None)
Quarter: 2009Q3

REPORT INFORMATION
  Report Type: 
  Country: None (occurrence: None)
  Receive Date: 20090724
  Receipt Date: 20090714
  Transmission Date: 20100115
  Serious: Yes (Hospitalization)
  Sender: FDA-Public Use
  Company Number: US-WYE-H09545709

PATIENT
  Sex: Male
  Weight: 95.6 kg

DRUGS (3)
  1. TEMSIROLIMUS [Suspect]
     Indication: METASTATIC RENAL CELL CARCINOMA
     Route: 042
     Dates: start: 20090408, end: 20090528
  2. TEMSIROLIMUS [Suspect]
     Route: 042
     Dates: start: 20090617
  3. BEVACIZUMAB [Suspect]
     Indication: METASTATIC RENAL CELL CARCINOMA
     Route: 042
     Dates: start: 20090408

REACTIONS (1)
  - SUBCUTANEOUS ABSCESS [None]
